FAERS Safety Report 17479809 (Version 2)
Quarter: 2020Q1

REPORT INFORMATION
  Report Type: Spontaneous
  Country: DE (occurrence: DE)
  Receive Date: 20200228
  Receipt Date: 20200311
  Transmission Date: 20200409
  Serious: Yes (Other)
  Sender: FDA-Public Use
  Company Number: DE-BAUSCH-BL-2020-005987

PATIENT
  Age: 42 Year
  Sex: Male

DRUGS (17)
  1. PREDNISOLONE. [Suspect]
     Active Substance: PREDNISOLONE
     Indication: CROHN^S DISEASE
     Route: 065
     Dates: start: 2003
  2. PREDNISOLONE. [Suspect]
     Active Substance: PREDNISOLONE
     Dosage: DOSE REDUCED TO LESS THAN 20 MG/DAY
     Route: 065
  3. PREDNISOLONE. [Suspect]
     Active Substance: PREDNISOLONE
     Dosage: HIGH DOSAGE HAD BEEN TAKEN FOR MANY YEARS
     Route: 065
     Dates: start: 2005
  4. PREDNISOLONE. [Suspect]
     Active Substance: PREDNISOLONE
     Route: 065
  5. AZATHIOPRINE. [Suspect]
     Active Substance: AZATHIOPRINE
     Indication: CROHN^S DISEASE
     Route: 065
  6. PREDNISONE. [Suspect]
     Active Substance: PREDNISONE
     Dosage: COMEDICATION
     Route: 065
  7. PREDNISONE. [Suspect]
     Active Substance: PREDNISONE
     Route: 065
  8. PREDNISOLONE. [Suspect]
     Active Substance: PREDNISOLONE
     Dosage: COMEDICATION
     Route: 065
  9. REMICADE [Suspect]
     Active Substance: INFLIXIMAB
     Indication: CROHN^S DISEASE
     Dosage: 5 MG/KG BODY WEIGHT
     Route: 065
     Dates: start: 20050928
  10. PREDNISONE. [Suspect]
     Active Substance: PREDNISONE
     Indication: CROHN^S DISEASE
     Route: 065
     Dates: start: 1988
  11. PREDNISOLONE. [Suspect]
     Active Substance: PREDNISOLONE
     Dosage: DOSAGE WAS REDUCED RAPIDLY
     Route: 065
     Dates: start: 2005
  12. PREDNISONE. [Suspect]
     Active Substance: PREDNISONE
     Dosage: DOSAGE WAS REDUCED RAPIDLY
     Route: 065
     Dates: start: 2005
  13. PREDNISONE. [Suspect]
     Active Substance: PREDNISONE
     Dosage: DOSE REDUCED TO LESS THAN 20 MG/DAY
     Route: 065
  14. METHOTREXATE. [Suspect]
     Active Substance: METHOTREXATE
     Indication: CROHN^S DISEASE
     Route: 065
  15. 5-ASA [Concomitant]
     Active Substance: MESALAMINE
     Indication: CROHN^S DISEASE
     Route: 065
  16. REMICADE [Suspect]
     Active Substance: INFLIXIMAB
     Dosage: SECOND DOSE OF INFLIXIMAB ON AN OUT PATIENT BASIS
     Route: 065
     Dates: start: 20051012
  17. PREDNISONE. [Suspect]
     Active Substance: PREDNISONE
     Dosage: HIGH DOSAGE HAD BEEN TAKEN FOR MANY YEARS
     Route: 065
     Dates: start: 2005

REACTIONS (1)
  - Meningitis listeria [Recovered/Resolved]
